FAERS Safety Report 6993330-0 (Version None)
Quarter: 2010Q3

REPORT INFORMATION
  Report Type: 
  Country: None (occurrence: None)
  Receive Date: 20100917
  Receipt Date: 20100111
  Transmission Date: 20110219
  Serious: No
  Sender: FDA-Public Use
  Company Number: US-ASTRAZENECA-2010SE01195

PATIENT
  Age: 17745 Day
  Sex: Female
  Weight: 54.4 kg

DRUGS (2)
  1. SEROQUEL [Suspect]
     Indication: BIPOLAR DISORDER
     Dosage: DAILY
     Route: 048
     Dates: end: 20100102
  2. SEROQUEL [Suspect]
     Indication: SLEEP DISORDER
     Dosage: DAILY
     Route: 048
     Dates: end: 20100102

REACTIONS (4)
  - DRUG DOSE OMISSION [None]
  - HALLUCINATION [None]
  - INSOMNIA [None]
  - PSYCHOTIC DISORDER [None]
